FAERS Safety Report 21983090 (Version 1)
Quarter: 2023Q1

REPORT INFORMATION
  Report Type: Spontaneous
  Country: US (occurrence: US)
  Receive Date: 20230213
  Receipt Date: 20230213
  Transmission Date: 20230418
  Serious: No
  Sender: FDA-Public Use
  Company Number: US-BRISTOL-MYERS SQUIBB COMPANY-2023-020304

PATIENT
  Age: 64 Year
  Sex: Female
  Weight: 117.0 kg

DRUGS (1)
  1. LENALIDOMIDE [Suspect]
     Active Substance: LENALIDOMIDE
     Indication: Plasma cell myeloma
     Route: 048
     Dates: start: 20210315

REACTIONS (2)
  - Pyrexia [Unknown]
  - Oral herpes [Unknown]

NARRATIVE: CASE EVENT DATE: 20230206
